FAERS Safety Report 24815658 (Version 1)
Quarter: 2025Q1

REPORT INFORMATION
  Report Type: Spontaneous
  Country: US (occurrence: None)
  Receive Date: 20250107
  Receipt Date: 20250107
  Transmission Date: 20250409
  Serious: Yes (Hospitalization)
  Sender: FDA-CTU
  Company Number: None

PATIENT
  Age: 93 Year
  Sex: Male

DRUGS (1)
  1. ATORVASTATIN CALCIUM [Suspect]
     Active Substance: ATORVASTATIN CALCIUM
     Indication: Hyperlipidaemia
     Dosage: ?10.00 MG AT BEDTIME ORAL
     Route: 048
     Dates: end: 20240723

REACTIONS (4)
  - Rhabdomyolysis [None]
  - Fall [None]
  - Skin laceration [None]
  - Blood creatinine increased [None]

NARRATIVE: CASE EVENT DATE: 20240721
